FAERS Safety Report 5043163-X (Version None)
Quarter: 2006Q3

REPORT INFORMATION
  Report Type: 
  Country: None (occurrence: None)
  Receive Date: 20060703
  Receipt Date: 20060703
  Transmission Date: 20061208
  Serious: Yes (Hospitalization)
  Sender: FDA-Public Use
  Company Number: None

PATIENT
  Age: 42 Year
  Sex: Female
  Weight: 74.1 kg

DRUGS (2)
  1. RIBAVIRIN [Suspect]
     Dosage: 1200 MG DAILY PO
     Route: 048
  2. INTERFERON [Suspect]
     Dosage: SQ
     Route: 058

REACTIONS (2)
  - PERIORBITAL CELLULITIS [None]
  - SINUSITIS [None]
